FAERS Safety Report 8359231-0 (Version None)
Quarter: 2012Q1

REPORT INFORMATION
  Report Type: 
  Country: None (occurrence: None)
  Receive Date: 20111004
  Receipt Date: 20110708
  Transmission Date: 20120608
  Serious: No
  Sender: FDA-Public Use
  Company Number: 2011IP000123

PATIENT
  Age: 40 Year
  Sex: Female

DRUGS (2)
  1. ANTIHISTAMINE ALLERGY RELIEF [Concomitant]
  2. BEPREVE [Suspect]
     Indication: EYE IRRITATION
     Dosage: 1 GTT;  OPH
     Route: 047
     Dates: start: 20110707

REACTIONS (4)
  - UPPER-AIRWAY COUGH SYNDROME [None]
  - HEADACHE [None]
  - VOMITING [None]
  - RHINORRHOEA [None]
